FAERS Safety Report 5960046-9 (Version None)
Quarter: 2008Q4

REPORT INFORMATION
  Report Type: 
  Country: None (occurrence: None)
  Receive Date: 20081119
  Receipt Date: 20081119
  Transmission Date: 20090506
  Serious: No
  Sender: FDA-Public Use
  Company Number: None

PATIENT
  Age: 44 Year
  Sex: Female
  Weight: 68 kg

DRUGS (19)
  1. FENTANYL TRANSDERMAL SYSTEM [Suspect]
     Indication: PAIN
     Dosage: 175 MCQ Q 72 HRS
     Dates: start: 20080820
  2. HYDROMORPHONE HCL [Suspect]
     Dosage: 1 MG IV /PCA
     Route: 042
     Dates: start: 20080820
  3. LORAZEPAM [Suspect]
     Dosage: 1 MG
  4. VANCOMYCIN HCL [Concomitant]
  5. TIGECYCLINE [Concomitant]
  6. SERTRALINE [Concomitant]
  7. OXYMETOLAZONE [Concomitant]
  8. ONDANSETRON [Concomitant]
  9. METRONIDAZOLE [Concomitant]
  10. MG [Concomitant]
  11. LANSOPRAZOLE [Concomitant]
  12. GABAPENTIN [Concomitant]
  13. NEUPOGEN [Concomitant]
  14. COLISTIN SULFATE [Concomitant]
  15. CETIRAZINE [Concomitant]
  16. CEFEPIME [Concomitant]
  17. CASPOFUNGIN [Concomitant]
  18. AMIKACIN [Concomitant]
  19. ACYCLOVIR [Concomitant]

REACTIONS (4)
  - PYREXIA [None]
  - SOMNOLENCE [None]
  - UNRESPONSIVE TO STIMULI [None]
  - UPPER GASTROINTESTINAL HAEMORRHAGE [None]
